FAERS Safety Report 8375498-7 (Version None)
Quarter: 2012Q1

REPORT INFORMATION
  Report Type: 
  Country: None (occurrence: None)
  Receive Date: 20120323
  Receipt Date: 20110316
  Transmission Date: 20120608
  Serious: Yes (Other)
  Sender: FDA-Public Use
  Company Number: 163-21880-11022378

PATIENT
  Age: 75 Year
  Sex: Male

DRUGS (1)
  1. REVLIMID [Suspect]
     Indication: MULTIPLE MYELOMA
     Dosage: 10 MG, DAILY FOR 21 DAYS, PO
     Route: 048
     Dates: start: 20110101, end: 20110307

REACTIONS (10)
  - DIARRHOEA [None]
  - ERYTHEMA [None]
  - NAUSEA [None]
  - ABDOMINAL PAIN [None]
  - SKIN WARM [None]
  - PRURITUS [None]
  - RASH [None]
  - EPISTAXIS [None]
  - FULL BLOOD COUNT DECREASED [None]
  - COUGH [None]
